FAERS Safety Report 8007816-3 (Version None)
Quarter: 2011Q4

REPORT INFORMATION
  Report Type: 
  Country: None (occurrence: None)
  Receive Date: 20111222
  Receipt Date: 20111222
  Transmission Date: 20120403
  Serious: Yes (Other)
  Sender: FDA-Public Use
  Company Number: None

PATIENT
  Sex: Male
  Weight: 74.8435 kg

DRUGS (2)
  1. BACTRIM DS [Concomitant]
  2. ATRIPLA [Suspect]
     Indication: HIV INFECTION
     Dosage: 600MG QHS PO
     Route: 048
     Dates: start: 20111025, end: 20111206

REACTIONS (4)
  - DISTURBANCE IN ATTENTION [None]
  - AGGRESSION [None]
  - ABNORMAL DREAMS [None]
  - DIZZINESS [None]
